FAERS Safety Report 10562789 (Version 2)
Quarter: 2015Q1

REPORT INFORMATION
  Report Type: Spontaneous
  Country: JP (occurrence: JP)
  Receive Date: 20141104
  Receipt Date: 20150212
  Transmission Date: 20150720
  Serious: Yes (Death)
  Sender: FDA-Public Use
  Company Number: JP-TEVA-518578ISR

PATIENT
  Age: 31 Year
  Sex: Female
  Weight: 51 kg

DRUGS (48)
  1. E-FEN BUCCAL [Suspect]
     Active Substance: FENTANYL CITRATE
     Indication: BREAKTHROUGH PAIN
     Dosage: 100 MICROGRAM - 300 MICROGRAM
     Route: 002
     Dates: start: 20140508, end: 20140522
  2. E-FEN BUCCAL [Suspect]
     Active Substance: FENTANYL CITRATE
     Dosage: 200 MICROGRAM
     Route: 002
     Dates: start: 20140523, end: 20140527
  3. E-FEN BUCCAL [Suspect]
     Active Substance: FENTANYL CITRATE
     Dosage: 400 MICROGRAM
     Route: 002
     Dates: start: 20140607, end: 20140620
  4. E-FEN BUCCAL [Suspect]
     Active Substance: FENTANYL CITRATE
     Dosage: 0 MICROGRAM - 2400 MICROGRAM
     Route: 002
     Dates: start: 20140607, end: 20140620
  5. XYLOCAINE [Concomitant]
     Active Substance: LIDOCAINE HYDROCHLORIDE
     Route: 051
     Dates: start: 20140531, end: 20140531
  6. MAGMITT [Concomitant]
     Active Substance: MAGNESIUM OXIDE
     Dosage: 1980 MILLIGRAM DAILY;
     Route: 048
  7. INTRALIPOS [Concomitant]
     Active Substance: SOYBEAN OIL
     Dosage: 1 DOSAGE FORMS DAILY;
     Route: 051
     Dates: start: 20140508
  8. ELNEOPA [Concomitant]
     Active Substance: UNSPECIFIED INGREDIENT
     Dosage: 1 DOSAGE FORMS DAILY;
     Route: 051
  9. FENTANYL. [Concomitant]
     Active Substance: FENTANYL
     Indication: BREAKTHROUGH PAIN
     Route: 051
     Dates: start: 20140530
  10. BFLUID [Concomitant]
     Active Substance: AMINO ACIDS\DEXTROSE\ELECTROLYTES NOS\VITAMINS
     Route: 042
     Dates: start: 20140611
  11. FENTOS [Concomitant]
     Active Substance: FENTANYL
     Route: 062
     Dates: start: 20140521, end: 20140524
  12. SOLU-MEDROL [Concomitant]
     Active Substance: METHYLPREDNISOLONE SODIUM SUCCINATE
     Dosage: 1 DOSAGE FORMS DAILY;
     Route: 051
     Dates: start: 20140530, end: 20140601
  13. ALPINY [Concomitant]
     Active Substance: ACETAMINOPHEN
     Indication: CANCER PAIN
     Dosage: 100 MILLIGRAM DAILY;
     Route: 054
     Dates: start: 20140612, end: 20140612
  14. ATARAX-P [Concomitant]
     Active Substance: HYDROXYZINE HYDROCHLORIDE
     Dosage: .2 DOSAGE FORMS DAILY;
     Route: 051
     Dates: start: 20140531, end: 20140531
  15. FULCALIQ 1 [Concomitant]
     Dosage: 1 DOSAGE FORMS DAILY;
     Route: 051
     Dates: start: 20140531, end: 20140610
  16. FENTOS [Concomitant]
     Active Substance: FENTANYL
     Indication: CANCER PAIN
     Route: 062
     Dates: end: 20140520
  17. FENTOS [Concomitant]
     Active Substance: FENTANYL
     Route: 062
     Dates: start: 20140525, end: 20140608
  18. NEXIUM [Concomitant]
     Active Substance: ESOMEPRAZOLE MAGNESIUM
     Indication: PROPHYLAXIS AGAINST GASTROINTESTINAL ULCER
     Dosage: 20 MILLIGRAM DAILY;
     Route: 048
     Dates: start: 20140511, end: 20140511
  19. LENDORMIN D [Concomitant]
     Active Substance: BROTIZOLAM
     Dosage: .25 MILLIGRAM DAILY;
     Route: 048
     Dates: start: 20140515, end: 20140517
  20. SANDOSTATIN [Concomitant]
     Active Substance: OCTREOTIDE ACETATE
     Dosage: 3 DOSAGE FORMS DAILY;
     Route: 051
     Dates: start: 20140531
  21. LANDSEN [Concomitant]
     Active Substance: CLONAZEPAM
     Indication: CANCER PAIN
     Route: 048
     Dates: start: 20140523, end: 20140605
  22. HEPARIN NA LOCK [Concomitant]
     Dosage: 1 DOSAGE FORMS DAILY;
     Route: 051
  23. RINDERON V [Concomitant]
     Active Substance: BETAMETHASONE VALERATE
     Dosage: 1 DOSAGE FORMS DAILY;
     Dates: end: 20140512
  24. RINDERON V [Concomitant]
     Active Substance: BETAMETHASONE VALERATE
     Dosage: 4 MILLIGRAM DAILY;
     Route: 048
     Dates: start: 20140513, end: 20140517
  25. NORMAL SALINE [Concomitant]
     Active Substance: SODIUM CHLORIDE
     Dosage: 1 DOSAGE FORMS DAILY;
     Route: 051
     Dates: start: 20140509, end: 20140517
  26. ADOFEED [Concomitant]
     Active Substance: FLURBIPROFEN
     Dosage: 1 DOSAGE FORMS DAILY;
     Route: 061
     Dates: start: 20140603, end: 20140604
  27. E-FEN BUCCAL [Suspect]
     Active Substance: FENTANYL CITRATE
     Dosage: 400 MICROGRAM - 1200 MICROGRAM
     Route: 002
     Dates: start: 20140528, end: 20140606
  28. CRAVIT [Concomitant]
     Active Substance: LEVOFLOXACIN
     Dosage: 500 MILLIGRAM DAILY;
     Route: 048
     Dates: start: 20140518, end: 20140522
  29. VERAPAMIL HCL [Concomitant]
     Active Substance: VERAPAMIL HYDROCHLORIDE
     Indication: BREAKTHROUGH PAIN
     Route: 054
     Dates: start: 20140605, end: 20140605
  30. LINTON [Concomitant]
     Active Substance: HALOPERIDOL
     Dosage: .2 DOSAGE FORMS DAILY;
     Route: 051
     Dates: start: 20140531, end: 20140531
  31. FENTOS [Concomitant]
     Active Substance: FENTANYL
     Route: 062
     Dates: start: 20140609, end: 20140629
  32. GLYCERIN. [Concomitant]
     Active Substance: GLYCERIN
     Dosage: 1 DOSAGE FORMS DAILY;
     Route: 054
     Dates: start: 20140508, end: 20140515
  33. GASTER [Concomitant]
     Active Substance: FAMOTIDINE
     Indication: PROPHYLAXIS AGAINST GASTROINTESTINAL ULCER
     Dosage: 2 DOSAGE FORMS DAILY;
     Route: 051
     Dates: start: 20140529
  34. GLUCOSE [Concomitant]
     Active Substance: DEXTROSE
     Dosage: 1 DOSAGE FORMS DAILY;
     Route: 051
     Dates: start: 20140530, end: 20140530
  35. NORMAL SALINE [Concomitant]
     Active Substance: SODIUM CHLORIDE
     Dosage: 1 DOSAGE FORMS DAILY;
     Route: 051
     Dates: start: 20140502
  36. FENTANYL. [Concomitant]
     Active Substance: FENTANYL
     Route: 051
     Dates: start: 20140530, end: 20140629
  37. VERAPAMIL HCL [Concomitant]
     Active Substance: VERAPAMIL HYDROCHLORIDE
     Route: 054
     Dates: start: 20140610, end: 20140617
  38. ADONA [Concomitant]
     Active Substance: CARBAZOCHROME SODIUM SULFONATE
     Dosage: 2 DOSAGE FORMS DAILY;
     Route: 042
     Dates: start: 20140607, end: 20140608
  39. DORMICUM [Concomitant]
     Active Substance: MIDAZOLAM\MIDAZOLAM HYDROCHLORIDE
     Dosage: 1 DOSAGE FORMS DAILY;
     Route: 051
     Dates: start: 20140607, end: 20140611
  40. SANDOSTATIN [Concomitant]
     Active Substance: OCTREOTIDE ACETATE
     Dosage: 3 DOSAGE FORMS DAILY;
     Route: 051
     Dates: start: 20140616, end: 20140617
  41. OXINORM [Concomitant]
     Active Substance: OXYCODONE HYDROCHLORIDE
     Indication: CANCER PAIN
     Route: 048
     Dates: end: 20140530
  42. XYLOCAINE [Concomitant]
     Active Substance: LIDOCAINE HYDROCHLORIDE
     Indication: CANCER PAIN
     Route: 051
     Dates: start: 20140530, end: 20140530
  43. SOLITA-T NO.1 [Concomitant]
     Dosage: 1 DOSAGE FORMS DAILY;
     Route: 051
     Dates: start: 20140529, end: 20140530
  44. TRANSAMIN [Concomitant]
     Active Substance: TRANEXAMIC ACID
     Dosage: 4 DOSAGE FORMS DAILY;
     Route: 051
     Dates: start: 20140607, end: 20140608
  45. FLORID [Concomitant]
     Active Substance: MICONAZOLE
     Dosage: 1 DOSAGE FORMS DAILY;
     Route: 049
     Dates: start: 20140612
  46. XYLOCAINE [Concomitant]
     Active Substance: LIDOCAINE HYDROCHLORIDE
     Route: 051
     Dates: start: 20140601
  47. ROHYPNOL [Concomitant]
     Active Substance: FLUNITRAZEPAM
     Dosage: 1 MILLIGRAM DAILY;
     Route: 051
     Dates: start: 20140530
  48. NORMAL SALINE [Concomitant]
     Active Substance: SODIUM CHLORIDE
     Dosage: 3 ML DAILY;
     Route: 051
     Dates: start: 20140530

REACTIONS (1)
  - Gastric cancer [Fatal]

NARRATIVE: CASE EVENT DATE: 20140629
